FAERS Safety Report 7979054-1 (Version None)
Quarter: 2011Q4

REPORT INFORMATION
  Report Type: 
  Country: None (occurrence: None)
  Receive Date: 20111205
  Receipt Date: 20111121
  Transmission Date: 20120403
  Serious: Yes (Hospitalization, Other)
  Sender: FDA-Public Use
  Company Number: 2011S1024583

PATIENT
  Age: 62 Year
  Sex: Female
  Weight: 97.5234 kg

DRUGS (24)
  1. ADVAIR DISKUS 100/50 [Concomitant]
  2. APIDRA [Concomitant]
  3. FERROUS SULFATE TAB [Concomitant]
  4. LASIX [Concomitant]
  5. VITAMIN E [Concomitant]
  6. ZANAFLEX [Concomitant]
  7. ALBUTEROL [Concomitant]
  8. M.V.I. [Concomitant]
  9. CARVEDILOL [Suspect]
  10. CLONIDINE [Concomitant]
  11. ISOSORBIDE DINITRATE [Concomitant]
  12. LANTUS [Concomitant]
  13. DIGOXIN [Suspect]
     Indication: CARDIAC DISORDER
     Dosage: 0.125 MG;DAILY;
     Dates: end: 20080514
  14. HYDRALAZINE HCL [Concomitant]
  15. PREVACID [Concomitant]
  16. KLONOPIN [Concomitant]
  17. NITROGLYCERIN [Concomitant]
  18. VITAMIN C [Concomitant]
  19. ASPIRIN [Concomitant]
  20. COLACE [Concomitant]
  21. SPIRONOLACTONE [Concomitant]
  22. ZOCOR [Concomitant]
  23. NEURONTIN [Concomitant]
  24. NORVASC [Concomitant]

REACTIONS (9)
  - LETHARGY [None]
  - TOXICITY TO VARIOUS AGENTS [None]
  - DEHYDRATION [None]
  - UNRESPONSIVE TO STIMULI [None]
  - SINUS BRADYCARDIA [None]
  - CARDIOACTIVE DRUG LEVEL ABOVE THERAPEUTIC [None]
  - RENAL FAILURE ACUTE [None]
  - GENERAL PHYSICAL HEALTH DETERIORATION [None]
  - ANAEMIA [None]
